FAERS Safety Report 8261312-7 (Version None)
Quarter: 2012Q2

REPORT INFORMATION
  Report Type: 
  Country: None (occurrence: None)
  Receive Date: 20120402
  Receipt Date: 20120320
  Transmission Date: 20120825
  Serious: Yes (Other)
  Sender: FDA-Public Use
  Company Number: CL-399-2012

PATIENT
  Age: 74 Year
  Sex: Male

DRUGS (1)
  1. AMIODARONE HCL [Suspect]
     Indication: ATRIAL FLUTTER
     Dosage: UNK UNK UNK

REACTIONS (1)
  - ATRIAL CONDUCTION TIME PROLONGATION [None]
